FAERS Safety Report 4920225-6 (Version None)
Quarter: 2006Q1

REPORT INFORMATION
  Report Type: 
  Country: None (occurrence: None)
  Receive Date: 20060223
  Receipt Date: 20060112
  Transmission Date: 20060701
  Serious: Yes (Other)
  Sender: FDA-Public Use
  Company Number: 2006AP00260

PATIENT
  Age: 25340 Day
  Sex: Male
  Weight: 43.4 kg

DRUGS (6)
  1. IRESSA [Suspect]
     Indication: LUNG ADENOCARCINOMA
     Route: 048
     Dates: start: 20051121, end: 20060111
  2. MAGNESIUM OXIDE [Concomitant]
     Indication: CONSTIPATION
     Route: 048
     Dates: start: 20051201
  3. ALLOID G [Concomitant]
     Indication: RADIATION OESOPHAGITIS
     Route: 048
     Dates: start: 20040501
  4. HACHIAZULE [Concomitant]
     Indication: FEELING ABNORMAL
     Dates: start: 20050601
  5. LENDORMIN [Concomitant]
     Indication: INSOMNIA
     Route: 048
     Dates: start: 20040501
  6. LOXONIN [Concomitant]
     Indication: PAIN
     Route: 048
     Dates: start: 20051226

REACTIONS (3)
  - ALANINE AMINOTRANSFERASE INCREASED [None]
  - ASPARTATE AMINOTRANSFERASE INCREASED [None]
  - HEPATIC FUNCTION ABNORMAL [None]
